FAERS Safety Report 23537512 (Version 1)
Quarter: 2024Q1

REPORT INFORMATION
  Report Type: Spontaneous
  Country: US (occurrence: US)
  Receive Date: 20240219
  Receipt Date: 20240219
  Transmission Date: 20240410
  Serious: Yes (Hospitalization)
  Sender: FDA-Public Use
  Company Number: US-ABBVIE-5639257

PATIENT
  Sex: Female
  Weight: 79 kg

DRUGS (1)
  1. HUMIRA [Suspect]
     Active Substance: ADALIMUMAB
     Indication: Psoriasis
     Dosage: FORM STRENGTH: 40 MILLIGRAM
     Route: 058
     Dates: start: 2019, end: 202312

REACTIONS (8)
  - SARS-CoV-2 test positive [Recovered/Resolved]
  - Memory impairment [Not Recovered/Not Resolved]
  - Anosmia [Recovered/Resolved]
  - Fall [Recovered/Resolved]
  - Oxygen saturation decreased [Recovered/Resolved]
  - Cough [Recovering/Resolving]
  - Dehydration [Recovered/Resolved]
  - Injection site discolouration [Recovered/Resolved]

NARRATIVE: CASE EVENT DATE: 20220101
